FAERS Safety Report 4522574-2 (Version None)
Quarter: 2004Q4

REPORT INFORMATION
  Report Type: 
  Country: None (occurrence: None)
  Receive Date: 20041209
  Receipt Date: 20030821
  Transmission Date: 20050328
  Serious: Yes (Death, Other)
  Sender: FDA-Public Use
  Company Number: PHBS2003US08928

PATIENT
  Age: 19 Year
  Sex: Male

DRUGS (6)
  1. BASILIXIMAB [Suspect]
     Indication: RENAL TRANSPLANT
     Dosage: 12 MG/M2, ONCE/SINGLE
  2. TACROLIMUS [Concomitant]
     Indication: RENAL TRANSPLANT
     Dosage: .15 MG/KG, BID
     Route: 048
  3. METHYLPREDNISOLONE [Concomitant]
     Indication: RENAL TRANSPLANT
     Route: 042
  4. PREDNISOLONE [Concomitant]
     Indication: RENAL TRANSPLANT
     Dosage: .5 MG/KG, BID
     Route: 048
  5. FUROSEMIDE [Concomitant]
  6. HEPARIN [Concomitant]

REACTIONS (11)
  - CARDIO-RESPIRATORY ARREST [None]
  - CREPITATIONS [None]
  - FLUID OVERLOAD [None]
  - HAEMODIALYSIS [None]
  - HYPERKALAEMIA [None]
  - LUNG INFILTRATION [None]
  - NON-CARDIOGENIC PULMONARY OEDEMA [None]
  - RENAL TUBULAR NECROSIS [None]
  - RESPIRATORY DISTRESS [None]
  - RETROPERITONEAL HAEMORRHAGE [None]
  - URINE OUTPUT DECREASED [None]
